FAERS Safety Report 5643232-7 (Version None)
Quarter: 2008Q1

REPORT INFORMATION
  Report Type: 
  Country: None (occurrence: None)
  Receive Date: 20080228
  Receipt Date: 20080218
  Transmission Date: 20080703
  Serious: Yes (Other)
  Sender: FDA-Public Use
  Company Number: ES-TEVA-167740ISR

PATIENT
  Age: 59 Year
  Sex: Male

DRUGS (4)
  1. PACLITAXEL SOLUTION CONCENTRATE FOR INFUSION,6MG/ML [Suspect]
     Route: 042
     Dates: start: 20071119, end: 20071119
  2. RANITIDINE [Concomitant]
     Route: 042
     Dates: start: 20071119, end: 20071119
  3. GRANISETRON [Concomitant]
     Route: 042
     Dates: start: 20071119, end: 20071119
  4. DEXCHLORPHENIRAMINE [Concomitant]
     Route: 042
     Dates: start: 20071119, end: 20071119

REACTIONS (2)
  - ERYTHEMA [None]
  - RESPIRATORY FAILURE [None]
